FAERS Safety Report 21900363 (Version 1)
Quarter: 2023Q1

REPORT INFORMATION
  Report Type: Spontaneous
  Country: US (occurrence: US)
  Receive Date: 20230123
  Receipt Date: 20230123
  Transmission Date: 20230418
  Serious: No
  Sender: FDA-Public Use
  Company Number: TEVA-US-27Jun2022-25684

PATIENT
  Sex: Male
  Weight: 84.1 kg

DRUGS (2)
  1. BENDEKA [Suspect]
     Active Substance: BENDAMUSTINE HYDROCHLORIDE
     Indication: Lymphoma
     Dosage: 90 MG/M2, BR THERAPY
     Route: 042
  2. RITUXIMAB [Concomitant]
     Active Substance: RITUXIMAB
     Indication: Lymphoma
     Dosage: UNK, BR THERAPY
     Route: 042

REACTIONS (3)
  - Pulse abnormal [Unknown]
  - Dyspnoea [Unknown]
  - Erythema [Unknown]
